FAERS Safety Report 6222726-X (Version None)
Quarter: 2009Q2

REPORT INFORMATION
  Report Type: 
  Country: None (occurrence: None)
  Receive Date: 20090609
  Receipt Date: 20090609
  Transmission Date: 20091009
  Serious: No
  Sender: FDA-Public Use
  Company Number: None

PATIENT
  Age: 50 Year
  Sex: Female
  Weight: 64.8644 kg

DRUGS (2)
  1. EFFEXOR [Suspect]
     Indication: ANXIETY
     Dosage: 6 MONTHS, THEN STOPPED
  2. EFFEXOR [Suspect]
     Indication: DEPRESSION
     Dosage: 6 MONTHS, THEN STOPPED

REACTIONS (6)
  - BALANCE DISORDER [None]
  - DIZZINESS [None]
  - HEADACHE [None]
  - IMPATIENCE [None]
  - IRRITABILITY [None]
  - VERTIGO [None]
